FAERS Safety Report 7692955-7 (Version None)
Quarter: 2011Q3

REPORT INFORMATION
  Report Type: 
  Country: None (occurrence: None)
  Receive Date: 20110816
  Receipt Date: 20110802
  Transmission Date: 20111222
  Serious: Yes (Hospitalization)
  Sender: FDA-Public Use
  Company Number: THQ2011A04413

PATIENT
  Age: 68 Year
  Sex: Female

DRUGS (7)
  1. TAKEPRON (LANSOPRAZOLE) [Suspect]
     Indication: GASTRITIS PROPHYLAXIS
     Dosage: 15 MG(15 MG, 1 IN 1 D)
     Route: 048
     Dates: start: 20070702
  2. FERROUS CITRATE [Suspect]
     Indication: ANAEMIA PROPHYLAXIS
     Dosage: 50 MG (50 MG, 1 IN 1 D)
     Route: 048
     Dates: start: 20091119
  3. METOLATE (METHOTREXATE) [Suspect]
     Indication: RHEUMATOID ARTHRITIS
     Dosage: 8 MG, WEEKLY
     Route: 048
     Dates: start: 20070731
  4. STUDY DRUG (ALL OTHER THERAPEUTIC PRODUCTS) [Suspect]
     Indication: RHEUMATOID ARTHRITIS
     Dosage: 10 MG (5 MG, 2 IN 1 D)
     Route: 048
     Dates: start: 20080927
  5. FOLIC ACID [Suspect]
     Indication: RHEUMATOID ARTHRITIS
     Dosage: 5 MG, WEEKLY
     Route: 048
     Dates: start: 20070705
  6. MOBIC [Suspect]
     Indication: RHEUMATOID ARTHRITIS
     Dosage: 10 MG (10 MG, 1 IN 1 D)
     Route: 048
     Dates: start: 20070702
  7. KETOPROFEN [Concomitant]

REACTIONS (5)
  - CERVICAL SPINAL STENOSIS [None]
  - SPINAL CORD DISORDER [None]
  - BLOOD CREATINE PHOSPHOKINASE INCREASED [None]
  - INTERVERTEBRAL DISC PROTRUSION [None]
  - EXOSTOSIS [None]
